FAERS Safety Report 9430632 (Version 1)
Quarter: 2013Q3

REPORT INFORMATION
  Report Type: Spontaneous
  Country: ES (occurrence: ES)
  Receive Date: 20130730
  Receipt Date: 20130730
  Transmission Date: 20140515
  Serious: Yes (Death)
  Sender: FDA-Public Use
  Company Number: ES-009507513-1307ESP010523

PATIENT
  Age: 77 Year
  Sex: Male

DRUGS (3)
  1. IMIPENEM (+) CILASTATIN SODIUM [Suspect]
     Indication: MYCOBACTERIUM ABSCESSUS INFECTION
  2. CEFOXITIN [Suspect]
     Indication: MYCOBACTERIUM ABSCESSUS INFECTION
  3. CLARITHROMYCIN [Suspect]
     Indication: MYCOBACTERIUM ABSCESSUS INFECTION

REACTIONS (1)
  - Drug ineffective [Fatal]
